FAERS Safety Report 10101415 (Version 1)
Quarter: 2014Q2

REPORT INFORMATION
  Report Type: Spontaneous
  Country: AU (occurrence: None)
  Receive Date: 20140422
  Receipt Date: 20140422
  Transmission Date: 20141212
  Serious: Yes (Hospitalization)
  Sender: FDA-Public Use
  Company Number: 2304626

PATIENT
  Age: 39 Year
  Sex: Female

DRUGS (3)
  1. METHOTREXATE [Suspect]
     Indication: IMMUNOSUPPRESSANT DRUG THERAPY
  2. PREDNISONE [Suspect]
     Indication: IMMUNOSUPPRESSANT DRUG THERAPY
  3. ADALIMUMAB [Suspect]
     Indication: IMMUNOSUPPRESSANT DRUG THERAPY

REACTIONS (2)
  - Urosepsis [None]
  - Enterobacter sepsis [None]
